FAERS Safety Report 18619841 (Version 1)
Quarter: 2020Q4

REPORT INFORMATION
  Report Type: Spontaneous
  Country: CH (occurrence: CH)
  Receive Date: 20201215
  Receipt Date: 20201215
  Transmission Date: 20210114
  Serious: Yes (Hospitalization)
  Sender: FDA-Public Use
  Company Number: CH-PFIZER INC-2020489189

PATIENT
  Age: 53 Year
  Sex: Male

DRUGS (19)
  1. CYMBALTA [Suspect]
     Active Substance: DULOXETINE HYDROCHLORIDE
     Indication: MENTAL DISORDER
  2. RYDAPT [Concomitant]
     Active Substance: MIDOSTAURIN
     Dosage: UNK
  3. FEXOFENADINE [Concomitant]
     Active Substance: FEXOFENADINE HYDROCHLORIDE
     Dosage: UNK
  4. VALTREX [Concomitant]
     Active Substance: VALACYCLOVIR HYDROCHLORIDE
     Dosage: UNK
  5. LYRICA [Suspect]
     Active Substance: PREGABALIN
     Indication: PAIN
     Dosage: 75 MG, UNK
     Route: 048
  6. CYMBALTA [Suspect]
     Active Substance: DULOXETINE HYDROCHLORIDE
     Indication: PAIN
     Dosage: 60 MG, UNK
     Route: 048
  7. TARGIN [Concomitant]
     Active Substance: NALOXONE HYDROCHLORIDE\OXYCODONE HYDROCHLORIDE
     Dosage: UNK
  8. COVERSUM N [Suspect]
     Active Substance: PERINDOPRIL
     Indication: PAIN
     Dosage: 10 MG, UNK
     Route: 048
  9. ANAFRANIL [Concomitant]
     Active Substance: CLOMIPRAMINE HYDROCHLORIDE
     Dosage: UNK
  10. JAKAVI [RUXOLITINIB PHOSPHATE] [Concomitant]
     Active Substance: RUXOLITINIB PHOSPHATE
     Dosage: UNK
  11. JARDIANCE MET [Concomitant]
     Active Substance: EMPAGLIFLOZIN\METFORMIN HYDROCHLORIDE
     Dosage: UNK
  12. NALCROM [Concomitant]
     Active Substance: CROMOLYN SODIUM
     Dosage: UNK
  13. SINGULAIR [Concomitant]
     Active Substance: MONTELUKAST SODIUM
     Dosage: UNK
  14. COVERSUM N [Suspect]
     Active Substance: PERINDOPRIL
     Indication: MENTAL DISORDER
  15. LORATIN MEPHA [Concomitant]
     Dosage: UNK
  16. XOLAIR [Concomitant]
     Active Substance: OMALIZUMAB
     Dosage: UNK
  17. LYRICA [Suspect]
     Active Substance: PREGABALIN
     Indication: MENTAL DISORDER
  18. AMLODIPIN PFIZER [Concomitant]
     Active Substance: AMLODIPINE BESYLATE
     Dosage: UNK
  19. NEBIDO [Concomitant]
     Active Substance: TESTOSTERONE UNDECANOATE
     Dosage: UNK

REACTIONS (3)
  - Myalgia [Recovering/Resolving]
  - Troponin increased [Unknown]
  - Blood creatine phosphokinase increased [Unknown]
